FAERS Safety Report 9194166 (Version 1)
Quarter: 2013Q1

REPORT INFORMATION
  Report Type: Spontaneous
  Country: US (occurrence: US)
  Receive Date: 20130327
  Receipt Date: 20130327
  Transmission Date: 20140127
  Serious: No
  Sender: FDA-Public Use
  Company Number: US-ASTRAZENECA-2013SE16150

PATIENT
  Sex: Male

DRUGS (1)
  1. CRESTOR [Suspect]
     Route: 048

REACTIONS (6)
  - Peroneal nerve palsy [Unknown]
  - Meniscus injury [Unknown]
  - Weight decreased [Unknown]
  - Muscular dystrophy [Unknown]
  - Musculoskeletal disorder [Unknown]
  - Intentional drug misuse [Unknown]
